FAERS Safety Report 15191494 (Version 1)
Quarter: 2018Q3

REPORT INFORMATION
  Report Type: Report from Study
  Country: US (occurrence: US)
  Receive Date: 20180724
  Receipt Date: 20180724
  Transmission Date: 20181010
  Serious: No
  Sender: FDA-Public Use
  Company Number: US-AMGEN-USASL2018077954

PATIENT
  Sex: Female

DRUGS (1)
  1. KYPROLIS [Suspect]
     Active Substance: CARFILZOMIB
     Indication: PLASMA CELL MYELOMA
     Dosage: UNK UNK, 2 TIMES/WK
     Route: 065
     Dates: start: 2018

REACTIONS (3)
  - Peripheral swelling [Recovering/Resolving]
  - Headache [Recovering/Resolving]
  - Blood pressure increased [Recovering/Resolving]

NARRATIVE: CASE EVENT DATE: 2018
